FAERS Safety Report 5628679-7 (Version None)
Quarter: 2008Q1

REPORT INFORMATION
  Report Type: 
  Country: None (occurrence: None)
  Receive Date: 20080215
  Receipt Date: 20080206
  Transmission Date: 20080703
  Serious: Yes (Other)
  Sender: FDA-Public Use
  Company Number: FR-PFIZER INC-2008011916

PATIENT
  Sex: Male

DRUGS (2)
  1. VFEND [Suspect]
     Indication: CANDIDIASIS
     Route: 042
  2. VFEND [Suspect]
     Indication: CANDIDIASIS
     Route: 048

REACTIONS (2)
  - DERMATITIS ALLERGIC [None]
  - PRURITUS [None]
